FAERS Safety Report 8092450-X (Version None)
Quarter: 2012Q1

REPORT INFORMATION
  Report Type: 
  Country: None (occurrence: None)
  Receive Date: 20120128
  Receipt Date: 20110728
  Transmission Date: 20120608
  Serious: No
  Sender: FDA-Public Use
  Company Number: US-ABBOTT-11P-163-0842331-00

PATIENT
  Sex: Female

DRUGS (9)
  1. FLEXERIL [Concomitant]
     Indication: MUSCLE SPASMS
  2. MOBIC [Concomitant]
     Indication: RHEUMATOID ARTHRITIS
  3. HUMIRA [Suspect]
     Indication: RHEUMATOID ARTHRITIS
     Route: 058
     Dates: start: 20101001
  4. SYNTHROID [Concomitant]
     Indication: HYPOTHYROIDISM
  5. VICODIN [Concomitant]
     Indication: RHEUMATOID ARTHRITIS
  6. ZANTAC [Concomitant]
     Indication: GASTROOESOPHAGEAL REFLUX DISEASE
  7. METHOTREXATE [Concomitant]
     Indication: RHEUMATOID ARTHRITIS
  8. PREDNISONE TAB [Concomitant]
     Indication: RHEUMATOID ARTHRITIS
  9. CYMBALTA [Concomitant]
     Indication: DEPRESSION

REACTIONS (3)
  - INJECTION SITE DISCOMFORT [None]
  - INJECTION SITE REACTION [None]
  - INJECTION SITE HAEMATOMA [None]
